FAERS Safety Report 4307068-1 (Version None)
Quarter: 2004Q1

REPORT INFORMATION
  Report Type: 
  Country: None (occurrence: None)
  Receive Date: 20040227
  Receipt Date: 20040217
  Transmission Date: 20041129
  Serious: Yes (Hospitalization)
  Sender: FDA-Public Use
  Company Number: PHRM2004FR00893

PATIENT
  Age: 79 Year
  Sex: Male

DRUGS (6)
  1. TAREG [Suspect]
     Dosage: 160 MG, QD
     Route: 048
  2. XATRAL - SLOW RELEASE [Suspect]
     Indication: URINARY TRACT DISORDER
     Dosage: 5 MG, QD
     Route: 048
     Dates: start: 20031113, end: 20031113
  3. FENOFIBRATE GNR [Concomitant]
     Dosage: 200 MG, QD
     Route: 048
  4. STILNOX [Concomitant]
     Dosage: 10 MG, QD
     Route: 048
  5. PREVISCAN [Concomitant]
     Dosage: 25 MG, DAILY
     Route: 048
  6. CASODEX [Concomitant]
     Dosage: 50 MG, QD
     Route: 048

REACTIONS (8)
  - BLOOD CREATININE INCREASED [None]
  - DEHYDRATION [None]
  - DIZZINESS [None]
  - DRUG INTERACTION [None]
  - HYPOTENSION [None]
  - MALAISE [None]
  - MUSCULAR WEAKNESS [None]
  - VISION BLURRED [None]
